FAERS Safety Report 9801646 (Version 2)
Quarter: 2014Q1

REPORT INFORMATION
  Report Type: Spontaneous
  Country: FR (occurrence: FR)
  Receive Date: 20140107
  Receipt Date: 20140226
  Transmission Date: 20141002
  Serious: Yes (Disabling)
  Sender: FDA-Public Use
  Company Number: FR-BRISTOL-MYERS SQUIBB COMPANY-19973627

PATIENT
  Age: 58 Year
  Sex: Male

DRUGS (10)
  1. ERBITUX [Suspect]
     Indication: SQUAMOUS CELL CARCINOMA OF THE TONGUE
     Dosage: 2) 250MG/M2,CYC D1,8,15 BET SEP13 AND NOV13
     Dates: start: 201309
  2. CISPLATIN [Suspect]
     Indication: SQUAMOUS CELL CARCINOMA OF THE TONGUE
     Dosage: 1)DAY 1-21.?2)SEP 2012.
     Route: 042
     Dates: start: 201309, end: 201311
  3. ORAMORPH [Concomitant]
  4. PRIMPERAN [Concomitant]
  5. IDEOS [Concomitant]
  6. DIFFU-K [Concomitant]
  7. ZOPHREN [Concomitant]
  8. DUROGESIC [Concomitant]
  9. TAXOTERE [Concomitant]
     Indication: SQUAMOUS CELL CARCINOMA OF THE TONGUE
     Dosage: GENERIC NAME DOCETAXEL?DAY 1-21.
     Dates: start: 201309, end: 201311
  10. INEXIUM [Concomitant]

REACTIONS (2)
  - Optic neuropathy [Not Recovered/Not Resolved]
  - Visual acuity reduced [Not Recovered/Not Resolved]
